FAERS Safety Report 15812462 (Version 1)
Quarter: 2019Q1

REPORT INFORMATION
  Report Type: Spontaneous
  Country: US (occurrence: US)
  Receive Date: 20190111
  Receipt Date: 20190111
  Transmission Date: 20190417
  Serious: No
  Sender: FDA-Public Use
  Company Number: US-ALLERGAN-1772656US

PATIENT
  Age: 66 Year
  Sex: Female
  Weight: 86.17 kg

DRUGS (2)
  1. DICLOXACILLIN [Concomitant]
     Active Substance: DICLOXACILLIN
     Dosage: UNK
  2. DALVANCE [Suspect]
     Active Substance: DALBAVANCIN
     Indication: WOUND INFECTION STAPHYLOCOCCAL
     Dosage: 1500 MG, SINGLE
     Route: 042
     Dates: start: 20171215, end: 20171215

REACTIONS (4)
  - Off label use [Unknown]
  - Back pain [Recovering/Resolving]
  - Dyspnoea [Recovered/Resolved]
  - Chest pain [Recovered/Resolved]

NARRATIVE: CASE EVENT DATE: 20171215
